FAERS Safety Report 4705314-3 (Version None)
Quarter: 2005Q2

REPORT INFORMATION
  Report Type: 
  Country: None (occurrence: None)
  Receive Date: 20050629
  Receipt Date: 20050613
  Transmission Date: 20051028
  Serious: Yes (Hospitalization)
  Sender: FDA-Public Use
  Company Number: 002#3#2005-00179

PATIENT
  Age: 12 Year
  Sex: Female

DRUGS (2)
  1. GLYCOLAX [Suspect]
     Indication: CONSTIPATION
     Dosage: 1 IN 1 D, OTHER
     Dates: start: 20050402, end: 20050520
  2. CHEMOTHERAPY [Concomitant]

REACTIONS (13)
  - ABSCESS [None]
  - ABSCESS INTESTINAL [None]
  - CONSTIPATION [None]
  - DRUG ADMINISTRATION ERROR [None]
  - DRUG INEFFECTIVE [None]
  - GASTROINTESTINAL DISORDER [None]
  - INCORRECT DRUG DOSAGE FORM ADMINISTERED [None]
  - LEUKOPENIA [None]
  - MEDICAL DEVICE SITE REACTION [None]
  - MEDICATION ERROR [None]
  - POST PROCEDURAL COMPLICATION [None]
  - SEPSIS [None]
  - VOMITING [None]
